FAERS Safety Report 5031855-8 (Version None)
Quarter: 2006Q2

REPORT INFORMATION
  Report Type: 
  Country: None (occurrence: None)
  Receive Date: 20060616
  Receipt Date: 20060601
  Transmission Date: 20061013
  Serious: Yes (Hospitalization)
  Sender: FDA-Public Use
  Company Number: DSA_28316_2006

PATIENT
  Age: 84 Year
  Sex: Female

DRUGS (3)
  1. MONO-TILDIEM [Suspect]
     Indication: ESSENTIAL HYPERTENSION
     Dosage: DF PO
     Route: 048
  2. SECTRAL [Suspect]
     Indication: ESSENTIAL HYPERTENSION
     Dosage: DF PO
     Route: 048
  3. SKENAN [Suspect]
     Indication: GENERAL SYMPTOM
     Dosage: DF PO
     Route: 048

REACTIONS (4)
  - ATRIOVENTRICULAR BLOCK THIRD DEGREE [None]
  - DISTURBANCE IN ATTENTION [None]
  - DRUG LEVEL INCREASED [None]
  - ISCHAEMIC HEPATITIS [None]
